FAERS Safety Report 11657062 (Version 1)
Quarter: 2015Q4

REPORT INFORMATION
  Report Type: Other
  Country: DE (occurrence: DE)
  Receive Date: 20151023
  Receipt Date: 20151023
  Transmission Date: 20160304
  Serious: Yes (Hospitalization)
  Sender: FDA-Public Use
  Company Number: DE-MYLANLABS-2015M1035168

PATIENT

DRUGS (7)
  1. EXFORGE HCT [Concomitant]
     Active Substance: AMLODIPINE BESYLATE\HYDROCHLOROTHIAZIDE\VALSARTAN
     Dosage: 1 DF, QD (1 DF DOSAGE FORM EVERY DAYS)
     Route: 048
  2. MOXONIDIN STADA [Concomitant]
     Indication: HYPERTENSION
     Dosage: DAILY DOSE: 1 DF DOSAGE FORM EVERY DAYS
     Route: 048
  3. L-THYROXIN [Concomitant]
     Active Substance: LEVOTHYROXINE SODIUM
     Indication: HYPOTHYROIDISM
     Dosage: 150 ?G, QD (150 ?G MICROGRAM(S) EVERY DAYS)
     Route: 048
     Dates: start: 20150912
  4. ARCOXIA [Concomitant]
     Active Substance: ETORICOXIB
     Indication: PAIN
     Dosage: UNK (BEI BEDARF)
     Route: 048
  5. EUTHYROX [Concomitant]
     Active Substance: LEVOTHYROXINE SODIUM
     Indication: HYPOTHYROIDISM
     Dosage: 137 ?G, QD (137 ?G MICROGRAM(S) EVERY DAYS)
     Route: 048
     Dates: end: 20150911
  6. CARBAMAZEPIN [Suspect]
     Active Substance: CARBAMAZEPINE
     Indication: SPINAL PAIN
     Dosage: 200 MG, QD (200 MG MILLGRAM(S) EVERY DAYS)
     Route: 048
     Dates: start: 20150904, end: 20150905
  7. NOVAMIN                            /06276704/ [Concomitant]
     Active Substance: METAMIZOLE SODIUM
     Indication: PAIN
     Dosage: 30 GTT, UNK (BEI BEDARF)
     Route: 048

REACTIONS (5)
  - Tongue necrosis [Not Recovered/Not Resolved]
  - Swollen tongue [Not Recovered/Not Resolved]
  - Coating in mouth [Not Recovered/Not Resolved]
  - Glossitis [Not Recovered/Not Resolved]
  - Glossodynia [Not Recovered/Not Resolved]

NARRATIVE: CASE EVENT DATE: 201509
